FAERS Safety Report 10667355 (Version 1)
Quarter: 2014Q4

REPORT INFORMATION
  Report Type: Spontaneous
  Country: US (occurrence: US)
  Receive Date: 20141222
  Receipt Date: 20141222
  Transmission Date: 20150529
  Serious: Yes (Hospitalization)
  Sender: FDA-Public Use
  Company Number: PHHY2014US163328

PATIENT
  Age: 35 Year
  Sex: Female

DRUGS (1)
  1. ESTRADIOL. [Suspect]
     Active Substance: ESTRADIOL
     Indication: TRANSGENDER HORMONAL THERAPY
     Dosage: 2 MG, BID
     Route: 065

REACTIONS (5)
  - Abdominal pain [Recovering/Resolving]
  - Product use issue [Unknown]
  - Nausea [Recovering/Resolving]
  - Hypertriglyceridaemia [Recovering/Resolving]
  - Haematochezia [Recovering/Resolving]
